FAERS Safety Report 23088262 (Version 2)
Quarter: 2025Q2

REPORT INFORMATION
  Report Type: Spontaneous
  Country: DE (occurrence: DE)
  Receive Date: 20231020
  Receipt Date: 20250505
  Transmission Date: 20250717
  Serious: Yes (Other)
  Sender: AUROBINDO
  Company Number: DE-NOVPHSZ-PHHY2018DE060097

PATIENT
  Age: 23 Year
  Sex: Female

DRUGS (9)
  1. DULOXETINE [Suspect]
     Active Substance: DULOXETINE
     Indication: Radiculopathy
     Route: 065
  2. DULOXETINE [Suspect]
     Active Substance: DULOXETINE
     Indication: Neuralgia
  3. LIDOCAINE [Suspect]
     Active Substance: LIDOCAINE
     Indication: Radiculopathy
     Route: 061
  4. PREGABALIN [Suspect]
     Active Substance: PREGABALIN
     Indication: Neuralgia
     Route: 065
  5. NALOXONE [Suspect]
     Active Substance: NALOXONE
     Indication: Radiculopathy
     Route: 065
  6. TILIDINE [Suspect]
     Active Substance: TILIDINE
     Indication: Neuralgia
     Route: 065
  7. TAPENTADOL [Suspect]
     Active Substance: TAPENTADOL
     Indication: Neuralgia
     Route: 065
  8. BENZODIAZEPINE [Concomitant]
     Active Substance: BENZODIAZEPINE
     Indication: Neuralgia
     Route: 065
  9. TETRAZEPAM [Concomitant]
     Active Substance: TETRAZEPAM
     Indication: Neuralgia
     Route: 065

REACTIONS (5)
  - Cognitive disorder [Unknown]
  - Drug ineffective for unapproved indication [Unknown]
  - Product use in unapproved indication [Unknown]
  - Therapeutic response decreased [Unknown]
  - Therapeutic product effect incomplete [Unknown]
